FAERS Safety Report 6520747-0 (Version None)
Quarter: 2009Q4

REPORT INFORMATION
  Report Type: 
  Country: None (occurrence: None)
  Receive Date: 20091229
  Receipt Date: 20091223
  Transmission Date: 20100525
  Serious: Yes (Hospitalization)
  Sender: FDA-Public Use
  Company Number: GXKR2009JP13815

PATIENT
  Age: 73 Year
  Sex: Male

DRUGS (4)
  1. PARACETAMOL (NGX) [Suspect]
     Route: 065
  2. PARACETAMOL (NGX) [Suspect]
     Dosage: RECEIVED ON DAY 12 (RECHALLENGE)
     Route: 065
  3. ACETYLSALICYLIC ACID SRT [Concomitant]
  4. CEFACLOR [Concomitant]
     Route: 065

REACTIONS (6)
  - AGRANULOCYTOSIS [None]
  - CHILLS [None]
  - CONJUNCTIVAL PALLOR [None]
  - DECREASED APPETITE [None]
  - ERYTHEMA [None]
  - PYREXIA [None]
